FAERS Safety Report 6550978-5 (Version None)
Quarter: 2010Q1

REPORT INFORMATION
  Report Type: 
  Country: None (occurrence: None)
  Receive Date: 20100125
  Receipt Date: 20100113
  Transmission Date: 20100710
  Serious: Yes (Hospitalization)
  Sender: FDA-Public Use
  Company Number: FR-PFIZER INC-2009290658

PATIENT
  Age: 53 Year
  Sex: Female

DRUGS (4)
  1. ATARAX [Suspect]
     Dosage: UNK
     Route: 048
     Dates: start: 20090804, end: 20090808
  2. KETUM [Suspect]
     Indication: JOINT SPRAIN
     Dosage: UNK
     Route: 061
     Dates: start: 20090716, end: 20090726
  3. NUROFEN [Suspect]
     Dosage: 1 TABLET
     Route: 048
     Dates: start: 20090807, end: 20090807
  4. BISEPTINE [Suspect]
     Dosage: UNK
     Route: 061
     Dates: start: 20090804

REACTIONS (3)
  - ECZEMA [None]
  - RASH MACULO-PAPULAR [None]
  - URTICARIA [None]
